FAERS Safety Report 9149617 (Version 3)
Quarter: 2013Q4

REPORT INFORMATION
  Report Type: Spontaneous
  Country: US (occurrence: US)
  Receive Date: 20130308
  Receipt Date: 20131126
  Transmission Date: 20140711
  Serious: Yes (Hospitalization, Other)
  Sender: FDA-Public Use
  Company Number: US-BAYER-2013-025769

PATIENT
  Age: 30 Year
  Sex: Female
  Weight: 65.76 kg

DRUGS (3)
  1. MIRENA [Suspect]
     Indication: CONTRACEPTION
     Dosage: 20 MCG/24HR, CONT
     Route: 015
     Dates: start: 20060428, end: 20090128
  2. PRENATAL VITAMINS [Concomitant]
  3. AMERICAINE [Concomitant]
     Dosage: 4-6 TIMES A DAILY AS NEEDED

REACTIONS (10)
  - Uterine perforation [None]
  - Pelvic mass [None]
  - Ectopic pregnancy [None]
  - Device dislocation [None]
  - Injury [None]
  - Pain [None]
  - Emotional distress [None]
  - Drug ineffective [None]
  - Anxiety [None]
  - Device issue [None]
